FAERS Safety Report 6001437-X (Version None)
Quarter: 2008Q4

REPORT INFORMATION
  Report Type: 
  Country: None (occurrence: None)
  Receive Date: 20081215
  Receipt Date: 20071206
  Transmission Date: 20090506
  Serious: No
  Sender: FDA-Public Use
  Company Number: US-AMGEN-KDL251344

PATIENT
  Sex: Female

DRUGS (1)
  1. ENBREL [Suspect]
     Indication: PSORIASIS
     Route: 058
     Dates: start: 20071003, end: 20071110

REACTIONS (5)
  - ARTHRITIS [None]
  - EXOSTOSIS [None]
  - MYALGIA [None]
  - PSORIASIS [None]
  - SYNOVIAL CYST [None]
